FAERS Safety Report 12124511 (Version 2)
Quarter: 2016Q1

REPORT INFORMATION
  Report Type: Spontaneous
  Country: FI (occurrence: FI)
  Receive Date: 20160229
  Receipt Date: 20160316
  Transmission Date: 20160526
  Serious: Yes (Other)
  Sender: FDA-Public Use
  Company Number: FI-ROCHE-1717059

PATIENT
  Age: 14 Year
  Sex: Female

DRUGS (20)
  1. PARA-TABS [Concomitant]
     Active Substance: ACETAMINOPHEN
     Dosage: 1-2 TABLETS 1-3 TIMES A DAY WHEN NEEDED
     Route: 065
  2. OFTAQUIX [Concomitant]
     Active Substance: LEVOFLOXACIN
     Dosage: 5 MG/ML 1 DROP THREE TIMES A DAY IN THE CONJUNCTIVAL OF THE LEFT EYE
     Route: 065
  3. XALATAN [Concomitant]
     Active Substance: LATANOPROST
     Dosage: 50MCG/ML 1 DROP ONCE A DAY IN THE CONJUNCTIVAL OF THE LEFT EYE
     Route: 065
  4. VITAMIN B6 [Concomitant]
     Active Substance: PYRIDOXINE HYDROCHLORIDE
     Route: 065
  5. PRONAXEN [Concomitant]
     Active Substance: NAPROXEN
     Dosage: AS NEEDED 1 TABLET NOT MORE THAN 2 TABLETS PER DAY
     Route: 065
  6. ORENCIA [Concomitant]
     Active Substance: ABATACEPT
  7. ROACTEMRA [Suspect]
     Active Substance: TOCILIZUMAB
     Indication: ARTHRITIS
     Route: 042
     Dates: start: 20150519
  8. ROACTEMRA [Suspect]
     Active Substance: TOCILIZUMAB
     Route: 042
     Dates: start: 20151126
  9. AZARGA [Concomitant]
     Active Substance: BRINZOLAMIDE\TIMOLOL MALEATE
     Dosage: 10 MG/ML + 5 MG/ML 1 DROP 2 TIMES A DAY IN THE CONJUNCTIVAL OF THE LEFT EYE
     Route: 065
  10. ZITHROMAX [Concomitant]
     Active Substance: AZITHROMYCIN DIHYDRATE
     Dosage: 2 TABLET ONCE A DAY 2 DAYS IN A WEEK
     Route: 065
  11. SOMAC [Concomitant]
     Active Substance: PANTOPRAZOLE SODIUM
     Route: 065
  12. PREDNISOLON [Concomitant]
     Active Substance: PREDNISOLONE
     Route: 065
     Dates: start: 20160125
  13. OFTAN-TROPICAMID [Concomitant]
     Dosage: 5 MG/ML 1 DROP ONCE A DAY IN THE CONJUNCTIVAL OF THE LEFT EYE
     Route: 065
  14. ROACTEMRA [Suspect]
     Active Substance: TOCILIZUMAB
     Indication: IRITIS
     Route: 042
     Dates: start: 20150925
  15. TREXAN (FINLAND) [Concomitant]
     Route: 065
  16. PREDNISOLON [Concomitant]
     Active Substance: PREDNISOLONE
     Indication: IRITIS
     Route: 065
  17. PREDNISOLON [Concomitant]
     Active Substance: PREDNISOLONE
     Dosage: 5 MG EVERY OTHER MORNING AND 2.5 MG EVERY OTHER MORNING
     Route: 065
     Dates: start: 20160130
  18. PRED FORTE [Concomitant]
     Active Substance: PREDNISOLONE ACETATE
     Dosage: 10 MG/ML 1 DROP 6 TIMES PER DAY IN THE CONJUNCTIVAL OF THE LEFT EYE
     Route: 065
  19. TUBILYSIN [Concomitant]
     Route: 065
  20. FOLVITE [Concomitant]
     Active Substance: FOLIC ACID
     Dosage: 1 TABLET ONCE A DAY IN 6 DAYS A WEEK
     Route: 065

REACTIONS (2)
  - Gingival pain [Recovered/Resolved]
  - Oral pain [Recovered/Resolved]

NARRATIVE: CASE EVENT DATE: 20151126
